FAERS Safety Report 9976427 (Version 1)
Quarter: 2014Q1

REPORT INFORMATION
  Report Type: Report from Study
  Country: US (occurrence: US)
  Receive Date: 20140306
  Receipt Date: 20140306
  Transmission Date: 20141002
  Serious: No
  Sender: FDA-Public Use
  Company Number: US-ABBVIE-13P-163-1164817-00

PATIENT
  Sex: Female

DRUGS (1)
  1. HUMIRA [Suspect]
     Indication: PSORIASIS
     Dosage: 2 PENS DAY 1, 1 PEN DAY 8, 1
     Route: 058
     Dates: start: 20131015

REACTIONS (2)
  - Injection site erythema [Unknown]
  - Injection site pruritus [Unknown]
